FAERS Safety Report 13469550 (Version 2)
Quarter: 2017Q2

REPORT INFORMATION
  Report Type: Report from Study
  Country: US (occurrence: US)
  Receive Date: 20170421
  Receipt Date: 20170428
  Transmission Date: 20170830
  Serious: Yes (Other)
  Sender: FDA-Public Use
  Company Number: US-B.I. PHARMACEUTICALS,INC./RIDGEFIELD-2017-BI-015656

PATIENT
  Sex: Male

DRUGS (3)
  1. OFEV [Suspect]
     Active Substance: NINTEDANIB
     Indication: IDIOPATHIC PULMONARY FIBROSIS
     Route: 048
     Dates: start: 20161222, end: 20170317
  2. OFEV [Suspect]
     Active Substance: NINTEDANIB
     Route: 048
     Dates: start: 20170126
  3. OFEV [Suspect]
     Active Substance: NINTEDANIB
     Dosage: USE AS DIRECTED AS PHYSICIAN
     Route: 048
     Dates: end: 20170420

REACTIONS (3)
  - Coma [Unknown]
  - Transient ischaemic attack [Unknown]
  - Urinary tract infection [Unknown]
